FAERS Safety Report 13640986 (Version 1)
Quarter: 2017Q2

REPORT INFORMATION
  Report Type: Spontaneous
  Country: CA (occurrence: CA)
  Receive Date: 20170612
  Receipt Date: 20170612
  Transmission Date: 20170830
  Serious: Yes (Other)
  Sender: FDA-Public Use
  Company Number: CA-ROCHE-1945130

PATIENT
  Sex: Female

DRUGS (2)
  1. VINCRISTINE [Suspect]
     Active Substance: VINCRISTINE
     Indication: NON-HODGKIN^S LYMPHOMA
     Route: 065
     Dates: start: 201504
  2. RITUXAN [Suspect]
     Active Substance: RITUXIMAB
     Indication: NON-HODGKIN^S LYMPHOMA
     Dosage: YES
     Route: 042
     Dates: start: 201504

REACTIONS (8)
  - Stomatitis [Unknown]
  - Night sweats [Not Recovered/Not Resolved]
  - Arthralgia [Unknown]
  - Infusion related reaction [Recovered/Resolved]
  - Nasal disorder [Unknown]
  - Groin pain [Unknown]
  - Pain in jaw [Unknown]
  - Temporomandibular joint syndrome [Unknown]
